FAERS Safety Report 20527839 (Version 1)
Quarter: 2022Q1

REPORT INFORMATION
  Report Type: Report from Study
  Country: NL (occurrence: NL)
  Receive Date: 20220228
  Receipt Date: 20220228
  Transmission Date: 20220424
  Serious: Yes (Hospitalization, Other)
  Sender: FDA-Public Use
  Company Number: NL-ROCHE-2997406

PATIENT
  Age: 75 Year
  Sex: Male

DRUGS (4)
  1. BEVACIZUMAB [Suspect]
     Active Substance: BEVACIZUMAB
     Indication: Lung neoplasm malignant
     Dosage: UNK (LAST CYCLE DOSE 18/NOV/2021)
     Route: 042
     Dates: start: 20210520
  2. PACLITAXEL [Suspect]
     Active Substance: PACLITAXEL
     Indication: Lung neoplasm malignant
     Dosage: UNK (LAST DOSE ON 26/AUG/2021)
     Route: 042
     Dates: start: 20210520
  3. ATEZOLIZUMAB [Suspect]
     Active Substance: ATEZOLIZUMAB
     Indication: Lung neoplasm malignant
     Dosage: UNK (NUMBER OF CYCLE 7CUMULATIVE DOSE 8400 MILLIGRAM)
     Route: 041
     Dates: start: 20210520
  4. CARBOPLATIN [Suspect]
     Active Substance: CARBOPLATIN
     Indication: Lung neoplasm malignant
     Dosage: UNK (LAST DOSE ON 26/AUG/2021)
     Route: 042
     Dates: start: 20210520

REACTIONS (2)
  - Hydronephrosis [Not Recovered/Not Resolved]
  - Coronary artery disease [Recovered/Resolved with Sequelae]

NARRATIVE: CASE EVENT DATE: 20211214
